FAERS Safety Report 22246754 (Version 5)
Quarter: 2023Q2

REPORT INFORMATION
  Report Type: Report from Study
  Country: KR (occurrence: KR)
  Receive Date: 20230424
  Receipt Date: 20230519
  Transmission Date: 20230722
  Serious: Yes (Death, Life-Threatening, Hospitalization, Other)
  Sender: FDA-Public Use
  Company Number: KR-002147023-NVSC2023KR092669

PATIENT
  Age: 82 Year
  Sex: Female
  Weight: 60 kg

DRUGS (13)
  1. KISQALI FEMARA CO-PACK [Suspect]
     Active Substance: LETROZOLE\RIBOCICLIB
     Indication: Breast cancer metastatic
     Dosage: 600 MG
     Route: 048
     Dates: start: 20230310
  2. KISQALI FEMARA CO-PACK [Suspect]
     Active Substance: LETROZOLE\RIBOCICLIB
     Dosage: 400 MG
     Route: 048
     Dates: start: 20230406, end: 20230418
  3. KISQALI FEMARA CO-PACK [Suspect]
     Active Substance: LETROZOLE\RIBOCICLIB
     Dosage: 600 MG
     Route: 048
     Dates: start: 20230418, end: 20230418
  4. BRETRA [Concomitant]
     Indication: Hormone therapy
     Dosage: 2.5 MG
     Route: 065
     Dates: start: 20230310, end: 20230418
  5. BRETRA [Concomitant]
     Dosage: 2.5 MG, QD
     Route: 065
  6. ESROBAN [Concomitant]
     Indication: Prophylaxis
     Dosage: 10 G
     Route: 065
     Dates: start: 20230326, end: 20230326
  7. ESROBAN [Concomitant]
     Dosage: UNK, PRN
     Route: 065
  8. NEXIUM [Concomitant]
     Active Substance: ESOMEPRAZOLE MAGNESIUM
     Indication: Prophylaxis
     Dosage: UNK, PRN
     Route: 065
     Dates: end: 20230326
  9. NEXIUM [Concomitant]
     Active Substance: ESOMEPRAZOLE MAGNESIUM
     Dosage: 120 MG
     Route: 065
     Dates: start: 20230418
  10. MEGACE [Concomitant]
     Active Substance: MEGESTROL ACETATE
     Indication: Prophylaxis
     Dosage: 400 MG
     Route: 048
     Dates: start: 20230326, end: 20230411
  11. MEGACE [Concomitant]
     Active Substance: MEGESTROL ACETATE
     Dosage: 400 MG, QD
     Route: 048
  12. TAZOPERAN [Concomitant]
     Indication: Prophylaxis
     Dosage: 22.5 G
     Route: 065
     Dates: start: 20230418
  13. TAZOPERAN [Concomitant]
     Dosage: 22.5 G, QID
     Route: 065

REACTIONS (10)
  - Multiple organ dysfunction syndrome [Fatal]
  - Pulmonary embolism [Fatal]
  - Cardiac arrest [Fatal]
  - Dizziness [Fatal]
  - Dyspnoea [Fatal]
  - Mental status changes [Fatal]
  - Syncope [Fatal]
  - Arrhythmia [Fatal]
  - Pleural effusion [Recovered/Resolved with Sequelae]
  - Acid base balance abnormal [Unknown]

NARRATIVE: CASE EVENT DATE: 20230326
